FAERS Safety Report 5023251-4 (Version None)
Quarter: 2006Q2

REPORT INFORMATION
  Report Type: 
  Country: None (occurrence: None)
  Receive Date: 20060612
  Receipt Date: 20060601
  Transmission Date: 20061013
  Serious: Yes (Death)
  Sender: FDA-Public Use
  Company Number: NSADSS2002047391

PATIENT
  Sex: Female

DRUGS (13)
  1. REMICADE [Suspect]
     Indication: RHEUMATOID ARTHRITIS
     Route: 041
     Dates: start: 20010626
  2. NEURONTIN [Concomitant]
  3. VERAPAMIL [Concomitant]
  4. PEPCID [Concomitant]
  5. ALBUTEROL [Concomitant]
     Route: 055
  6. MULTIVITAMIN [Concomitant]
  7. MULTIVITAMIN [Concomitant]
  8. MULTIVITAMIN [Concomitant]
  9. MULTIVITAMIN [Concomitant]
  10. MULTIVITAMIN [Concomitant]
  11. MULTIVITAMIN [Concomitant]
  12. MULTIVITAMIN [Concomitant]
  13. MULTIVITAMIN [Concomitant]

REACTIONS (2)
  - ARTERIOSCLEROSIS CORONARY ARTERY [None]
  - CARDIAC ARREST [None]
